FAERS Safety Report 5524177-X (Version None)
Quarter: 2007Q4

REPORT INFORMATION
  Report Type: 
  Country: None (occurrence: None)
  Receive Date: 20071121
  Receipt Date: 20071114
  Transmission Date: 20080405
  Serious: Yes (Life-Threatening, Hospitalization, Other)
  Sender: FDA-Public Use
  Company Number: JP-PFIZER INC-2007058014

PATIENT
  Sex: Female
  Weight: 58 kg

DRUGS (16)
  1. LIPITOR [Suspect]
     Indication: HYPERLIPIDAEMIA
     Route: 048
     Dates: start: 20010904, end: 20070705
  2. ALDACTONE [Suspect]
     Indication: HYPERTENSION
     Route: 048
     Dates: start: 20061205, end: 20070705
  3. PANALDINE [Suspect]
     Indication: MYOCARDIAL INFARCTION
     Route: 048
  4. SERENACE [Suspect]
     Indication: DELUSION
     Route: 048
  5. GRAMALIL [Suspect]
     Indication: DELUSION
     Route: 048
  6. DRAMAMINE [Suspect]
     Indication: VERTIGO
     Route: 048
  7. DRUG, UNSPECIFIED [Concomitant]
  8. ASPIRIN [Concomitant]
     Route: 048
  9. LANIRAPID [Concomitant]
     Route: 048
  10. HERBESSER R [Concomitant]
     Route: 048
  11. FRANDOL [Concomitant]
     Route: 048
  12. PRORENAL [Concomitant]
     Route: 048
     Dates: start: 20010417, end: 20070705
  13. ROHYPNOL [Concomitant]
     Route: 048
  14. NOVOLIN N [Concomitant]
     Route: 058
  15. IRSOGLADINE MALEATE [Concomitant]
     Route: 048
     Dates: start: 20011101, end: 20070705
  16. ALOSENN [Concomitant]
     Route: 048

REACTIONS (3)
  - OVERDOSE [None]
  - RENAL DISORDER [None]
  - RHABDOMYOLYSIS [None]
